FAERS Safety Report 6760634-6 (Version None)
Quarter: 2010Q2

REPORT INFORMATION
  Report Type: 
  Country: None (occurrence: None)
  Receive Date: 20100608
  Receipt Date: 20100527
  Transmission Date: 20101027
  Serious: Yes (Hospitalization, Other)
  Sender: FDA-Public Use
  Company Number: FR-PFIZER INC-2010066854

PATIENT
  Age: 45 Year
  Sex: Female

DRUGS (3)
  1. CEFPODOXIME PROXETIL [Suspect]
     Indication: LUNG DISORDER
     Dosage: UNK
     Route: 048
     Dates: start: 20081113, end: 20081127
  2. SOLUPRED [Suspect]
     Indication: LUNG DISORDER
     Dosage: UNK
     Route: 048
     Dates: start: 20081113, end: 20081127
  3. CODOLIPRANE [Suspect]
     Indication: DRUG DEPENDENCE
     Dosage: 400 MG, UNK
     Route: 048
     Dates: end: 20081204

REACTIONS (2)
  - CHOLESTASIS [None]
  - HEPATITIS [None]
